FAERS Safety Report 6828711-9 (Version None)
Quarter: 2010Q3

REPORT INFORMATION
  Report Type: 
  Country: None (occurrence: None)
  Receive Date: 20100709
  Receipt Date: 20070216
  Transmission Date: 20110219
  Serious: No
  Sender: FDA-Public Use
  Company Number: US-PFIZER INC-2007013296

PATIENT
  Sex: Female
  Weight: 69.4 kg

DRUGS (12)
  1. CHANTIX [Suspect]
     Indication: SMOKING CESSATION THERAPY
     Dates: start: 20070207
  2. DIGOXIN [Concomitant]
  3. SPIRONOLACTONE [Concomitant]
  4. ENALAPRIL MALEATE [Concomitant]
  5. PAXIL [Concomitant]
  6. TRICOR [Concomitant]
  7. MEXILETINE [Concomitant]
  8. COREG [Concomitant]
  9. OMACOR [Concomitant]
  10. ZYPREXA [Concomitant]
  11. REMERON [Concomitant]
  12. LIPITOR [Concomitant]

REACTIONS (2)
  - NAUSEA [None]
  - VOMITING [None]
